FAERS Safety Report 8274802-8 (Version None)
Quarter: 2012Q2

REPORT INFORMATION
  Report Type: 
  Country: None (occurrence: None)
  Receive Date: 20120411
  Receipt Date: 20120326
  Transmission Date: 20120825
  Serious: Yes (Other)
  Sender: FDA-Public Use
  Company Number: CI-ASTRAZENECA-2012SE23035

PATIENT
  Age: 19584 Day
  Sex: Female
  Weight: 47 kg

DRUGS (3)
  1. CRESTOR [Suspect]
     Route: 048
  2. ANTIHYPERTENSIVE DRUG [Concomitant]
     Indication: HYPERTENSION
     Route: 048
  3. ATACAND [Suspect]
     Indication: HYPERTENSION
     Route: 048
     Dates: start: 20120308, end: 20120309

REACTIONS (2)
  - HEADACHE [None]
  - HYPERHIDROSIS [None]
